FAERS Safety Report 5342612-7 (Version None)
Quarter: 2007Q2

REPORT INFORMATION
  Report Type: 
  Country: None (occurrence: None)
  Receive Date: 20070601
  Receipt Date: 20070523
  Transmission Date: 20071010
  Serious: Yes (Hospitalization)
  Sender: FDA-Public Use
  Company Number: PH-PFIZER INC-2007032655

PATIENT
  Sex: Male

DRUGS (2)
  1. NORVASC [Suspect]
     Indication: HYPERTENSION
     Dosage: DAILY DOSE:5MG-FREQ:FREQUENCY: QD
  2. MULTIVITAMIN [Concomitant]

REACTIONS (2)
  - HYPERTENSION [None]
  - VOMITING [None]
